FAERS Safety Report 20938828 (Version 1)
Quarter: 2022Q2

REPORT INFORMATION
  Report Type: Spontaneous
  Country: US (occurrence: None)
  Receive Date: 20220608
  Receipt Date: 20220608
  Transmission Date: 20220720
  Serious: No
  Sender: FDA-Public Use
  Company Number: None

PATIENT
  Age: 39 Year
  Sex: Male
  Weight: 58.5 kg

DRUGS (2)
  1. ADAPALENE\BENZOYL PEROXIDE [Suspect]
     Active Substance: ADAPALENE\BENZOYL PEROXIDE
     Indication: Acne
     Dosage: FREQUENCY : AT BEDTIME;?
     Route: 061
     Dates: start: 20220528, end: 20220607
  2. ADAPALENE\BENZOYL PEROXIDE [Suspect]
     Active Substance: ADAPALENE\BENZOYL PEROXIDE
     Indication: Rosacea

REACTIONS (3)
  - Rash [None]
  - Acne [None]
  - Product substitution issue [None]

NARRATIVE: CASE EVENT DATE: 20220606
